FAERS Safety Report 15053907 (Version 4)
Quarter: 2025Q3

REPORT INFORMATION
  Report Type: Report from Study
  Country: EU (occurrence: EU)
  Receive Date: 20180622
  Receipt Date: 20250702
  Transmission Date: 20251021
  Serious: Yes (Other)
  Sender: MYLAN
  Company Number: EU-MYLANLABS-2018M1043903

PATIENT
  Age: 19 Year
  Sex: Female

DRUGS (104)
  1. PREDNISONE [Suspect]
     Active Substance: PREDNISONE
     Indication: Acute lymphocytic leukaemia
     Dosage: 20 MG/M2 2XDAY (Q12 H), CYCLIC
  2. PREDNISONE [Suspect]
     Active Substance: PREDNISONE
     Dosage: 20 MG/M2 2XDAY (Q12 H), CYCLIC
     Route: 048
  3. PREDNISONE [Suspect]
     Active Substance: PREDNISONE
     Dosage: 20 MG/M2 2XDAY (Q12 H), CYCLIC
     Route: 048
  4. PREDNISONE [Suspect]
     Active Substance: PREDNISONE
     Dosage: 20 MG/M2 2XDAY (Q12 H), CYCLIC
  5. IDARUBICIN [Suspect]
     Active Substance: IDARUBICIN
     Indication: Acute lymphocytic leukaemia
     Dosage: 12 MG/M2/D, CYCLIC; DAY 1,2 (CYCLE1 AND 2)
  6. IDARUBICIN [Suspect]
     Active Substance: IDARUBICIN
     Dosage: 12 MG/M2/D, CYCLIC; DAY 1,2 (CYCLE1 AND 2)
     Route: 042
  7. IDARUBICIN [Suspect]
     Active Substance: IDARUBICIN
     Dosage: 12 MG/M2/D, CYCLIC; DAY 1,2 (CYCLE1 AND 2)
     Route: 042
  8. IDARUBICIN [Suspect]
     Active Substance: IDARUBICIN
     Dosage: 12 MG/M2/D, CYCLIC; DAY 1,2 (CYCLE1 AND 2)
  9. BUSULFAN [Suspect]
     Active Substance: BUSULFAN
     Indication: Acute lymphocytic leukaemia
  10. BUSULFAN [Suspect]
     Active Substance: BUSULFAN
     Route: 042
  11. BUSULFAN [Suspect]
     Active Substance: BUSULFAN
     Route: 042
  12. BUSULFAN [Suspect]
     Active Substance: BUSULFAN
  13. METHOTREXATE [Suspect]
     Active Substance: METHOTREXATE
     Indication: Acute lymphocytic leukaemia
     Dosage: 5000 MG/M2, QD, CYCLIC
  14. METHOTREXATE [Suspect]
     Active Substance: METHOTREXATE
     Dosage: 5000 MG/M2, QD, CYCLIC
     Route: 042
  15. METHOTREXATE [Suspect]
     Active Substance: METHOTREXATE
     Dosage: 5000 MG/M2, QD, CYCLIC
     Route: 042
  16. METHOTREXATE [Suspect]
     Active Substance: METHOTREXATE
     Dosage: 5000 MG/M2, QD, CYCLIC
  17. FLUDARABINE [Suspect]
     Active Substance: FLUDARABINE PHOSPHATE
     Indication: Acute lymphocytic leukaemia
     Dosage: 50MG/M2 DAY 3-4-5
     Dates: start: 20150904
  18. FLUDARABINE [Suspect]
     Active Substance: FLUDARABINE PHOSPHATE
     Dosage: 50MG/M2 DAY 3-4-5
     Route: 065
     Dates: start: 20150904
  19. FLUDARABINE [Suspect]
     Active Substance: FLUDARABINE PHOSPHATE
     Dosage: 50MG/M2 DAY 3-4-5
     Route: 065
     Dates: start: 20150904
  20. FLUDARABINE [Suspect]
     Active Substance: FLUDARABINE PHOSPHATE
     Dosage: 50MG/M2 DAY 3-4-5
     Dates: start: 20150904
  21. FILGRASTIM [Suspect]
     Active Substance: FILGRASTIM
     Indication: Acute lymphocytic leukaemia
     Dosage: 5 UG/KG DAILY, CYCLIC, 5 TO ANC }1.0
  22. FILGRASTIM [Suspect]
     Active Substance: FILGRASTIM
     Dosage: 5 UG/KG DAILY, CYCLIC, 5 TO ANC }1.0
  23. FILGRASTIM [Suspect]
     Active Substance: FILGRASTIM
     Dosage: 5 UG/KG DAILY, CYCLIC, 5 TO ANC }1.0
     Route: 058
  24. FILGRASTIM [Suspect]
     Active Substance: FILGRASTIM
     Dosage: 5 UG/KG DAILY, CYCLIC, 5 TO ANC }1.0
     Route: 058
  25. FILGRASTIM [Suspect]
     Active Substance: FILGRASTIM
     Dosage: 10 UG/KG, (CYCLE 7), 8 TO HARVEST/ANC GREATER THAN 1.0
     Route: 058
  26. FILGRASTIM [Suspect]
     Active Substance: FILGRASTIM
     Dosage: 10 UG/KG, (CYCLE 7), 8 TO HARVEST/ANC GREATER THAN 1.0
     Route: 058
  27. FILGRASTIM [Suspect]
     Active Substance: FILGRASTIM
     Dosage: 10 UG/KG, (CYCLE 7), 8 TO HARVEST/ANC GREATER THAN 1.0
  28. FILGRASTIM [Suspect]
     Active Substance: FILGRASTIM
     Dosage: 10 UG/KG, (CYCLE 7), 8 TO HARVEST/ANC GREATER THAN 1.0
  29. FILGRASTIM [Suspect]
     Active Substance: FILGRASTIM
     Dosage: 5 UG/KG DAILY, CYCLIC, ANC{0.5 TO }1.0 (CYCLE 2)
     Route: 058
  30. FILGRASTIM [Suspect]
     Active Substance: FILGRASTIM
     Dosage: 5 UG/KG DAILY, CYCLIC, ANC{0.5 TO }1.0 (CYCLE 2)
  31. FILGRASTIM [Suspect]
     Active Substance: FILGRASTIM
     Dosage: 5 UG/KG DAILY, CYCLIC, ANC{0.5 TO }1.0 (CYCLE 2)
  32. FILGRASTIM [Suspect]
     Active Substance: FILGRASTIM
     Dosage: 5 UG/KG DAILY, CYCLIC, ANC{0.5 TO }1.0 (CYCLE 2)
     Route: 058
  33. FILGRASTIM [Suspect]
     Active Substance: FILGRASTIM
     Dosage: 5 UG/KG DAILY, CYCLIC (CYCLE 3)
  34. FILGRASTIM [Suspect]
     Active Substance: FILGRASTIM
     Dosage: 5 UG/KG DAILY, CYCLIC (CYCLE 3)
  35. FILGRASTIM [Suspect]
     Active Substance: FILGRASTIM
     Dosage: 5 UG/KG DAILY, CYCLIC (CYCLE 3)
     Route: 058
  36. FILGRASTIM [Suspect]
     Active Substance: FILGRASTIM
     Dosage: 5 UG/KG DAILY, CYCLIC (CYCLE 3)
     Route: 058
  37. BLINCYTO [Suspect]
     Active Substance: BLINATUMOMAB
     Indication: Acute lymphocytic leukaemia
  38. BLINCYTO [Suspect]
     Active Substance: BLINATUMOMAB
  39. BLINCYTO [Suspect]
     Active Substance: BLINATUMOMAB
     Route: 065
  40. BLINCYTO [Suspect]
     Active Substance: BLINATUMOMAB
     Route: 065
  41. BLINCYTO [Suspect]
     Active Substance: BLINATUMOMAB
  42. BLINCYTO [Suspect]
     Active Substance: BLINATUMOMAB
  43. BLINCYTO [Suspect]
     Active Substance: BLINATUMOMAB
     Route: 042
  44. BLINCYTO [Suspect]
     Active Substance: BLINATUMOMAB
     Route: 042
  45. MERCAPTOPURINE [Suspect]
     Active Substance: MERCAPTOPURINE
     Indication: Acute lymphocytic leukaemia
     Dosage: 60 MG/M2 DAILY, CYCLIC, DAY 1-14
  46. MERCAPTOPURINE [Suspect]
     Active Substance: MERCAPTOPURINE
     Dosage: 60 MG/M2 DAILY, CYCLIC, DAY 1-14
     Route: 048
  47. MERCAPTOPURINE [Suspect]
     Active Substance: MERCAPTOPURINE
     Dosage: 60 MG/M2 DAILY, CYCLIC, DAY 1-14
     Route: 048
  48. MERCAPTOPURINE [Suspect]
     Active Substance: MERCAPTOPURINE
     Dosage: 60 MG/M2 DAILY, CYCLIC, DAY 1-14
  49. LENOGRASTIM [Suspect]
     Active Substance: LENOGRASTIM
     Indication: Product used for unknown indication
     Dosage: 10 UG/M2,DAILY, CYCLIC (CYCLE 7) , 8 TO HARVEST/ANC GREATER THAN 1.0
     Route: 065
  50. LENOGRASTIM [Suspect]
     Active Substance: LENOGRASTIM
     Dosage: 10 UG/M2,DAILY, CYCLIC (CYCLE 7) , 8 TO HARVEST/ANC GREATER THAN 1.0
  51. LENOGRASTIM [Suspect]
     Active Substance: LENOGRASTIM
     Dosage: 10 UG/M2,DAILY, CYCLIC (CYCLE 7) , 8 TO HARVEST/ANC GREATER THAN 1.0
  52. LENOGRASTIM [Suspect]
     Active Substance: LENOGRASTIM
     Dosage: 10 UG/M2,DAILY, CYCLIC (CYCLE 7) , 8 TO HARVEST/ANC GREATER THAN 1.0
     Route: 065
  53. LENOGRASTIM [Suspect]
     Active Substance: LENOGRASTIM
     Dosage: 5 UG/KG DAILY, CYCLIC (CYCLE 3)
     Route: 058
  54. LENOGRASTIM [Suspect]
     Active Substance: LENOGRASTIM
     Dosage: 5 UG/KG DAILY, CYCLIC (CYCLE 3)
  55. LENOGRASTIM [Suspect]
     Active Substance: LENOGRASTIM
     Dosage: 5 UG/KG DAILY, CYCLIC (CYCLE 3)
  56. LENOGRASTIM [Suspect]
     Active Substance: LENOGRASTIM
     Dosage: 5 UG/KG DAILY, CYCLIC (CYCLE 3)
     Route: 058
  57. VINCRISTINE SULFATE [Suspect]
     Active Substance: VINCRISTINE SULFATE
     Indication: Acute lymphocytic leukaemia
     Dosage: 1.4 MG/M2, CYCLIC (MAX 2 MG), INFUSION TIME:PUSH
  58. VINCRISTINE SULFATE [Suspect]
     Active Substance: VINCRISTINE SULFATE
     Dosage: 1.4 MG/M2, CYCLIC (MAX 2 MG), INFUSION TIME:PUSH
     Route: 042
  59. VINCRISTINE SULFATE [Suspect]
     Active Substance: VINCRISTINE SULFATE
     Dosage: 1.4 MG/M2, CYCLIC (MAX 2 MG), INFUSION TIME:PUSH
     Route: 042
  60. VINCRISTINE SULFATE [Suspect]
     Active Substance: VINCRISTINE SULFATE
     Dosage: 1.4 MG/M2, CYCLIC (MAX 2 MG), INFUSION TIME:PUSH
  61. CYCLOPHOSPHAMIDE [Suspect]
     Active Substance: CYCLOPHOSPHAMIDE
     Indication: Acute lymphocytic leukaemia
     Dosage: 1000 MG/M2 DAILY, CYCLIC (CYCLE 2)
  62. CYCLOPHOSPHAMIDE [Suspect]
     Active Substance: CYCLOPHOSPHAMIDE
     Dosage: 1000 MG/M2 DAILY, CYCLIC (CYCLE 2)
  63. CYCLOPHOSPHAMIDE [Suspect]
     Active Substance: CYCLOPHOSPHAMIDE
     Dosage: 1000 MG/M2 DAILY, CYCLIC (CYCLE 2)
     Route: 042
  64. CYCLOPHOSPHAMIDE [Suspect]
     Active Substance: CYCLOPHOSPHAMIDE
     Dosage: 1000 MG/M2 DAILY, CYCLIC (CYCLE 2)
     Route: 042
  65. CYCLOPHOSPHAMIDE [Suspect]
     Active Substance: CYCLOPHOSPHAMIDE
     Dosage: 300 MG/M2 DAILY, CYCLIC, DAY -3 TO-1
  66. CYCLOPHOSPHAMIDE [Suspect]
     Active Substance: CYCLOPHOSPHAMIDE
     Dosage: 300 MG/M2 DAILY, CYCLIC, DAY -3 TO-1
  67. CYCLOPHOSPHAMIDE [Suspect]
     Active Substance: CYCLOPHOSPHAMIDE
     Dosage: 300 MG/M2 DAILY, CYCLIC, DAY -3 TO-1
     Route: 042
  68. CYCLOPHOSPHAMIDE [Suspect]
     Active Substance: CYCLOPHOSPHAMIDE
     Dosage: 300 MG/M2 DAILY, CYCLIC, DAY -3 TO-1
     Route: 042
  69. CYTARABINE [Suspect]
     Active Substance: CYTARABINE
     Indication: Acute lymphocytic leukaemia
     Dosage: 75 MG/M2 DAILY, CYCLIC (CYCLE 2)
  70. CYTARABINE [Suspect]
     Active Substance: CYTARABINE
     Dosage: 75 MG/M2 DAILY, CYCLIC (CYCLE 2)
  71. CYTARABINE [Suspect]
     Active Substance: CYTARABINE
     Dosage: 75 MG/M2 DAILY, CYCLIC (CYCLE 2)
     Route: 042
  72. CYTARABINE [Suspect]
     Active Substance: CYTARABINE
     Dosage: 75 MG/M2 DAILY, CYCLIC (CYCLE 2)
     Route: 042
  73. CYTARABINE [Suspect]
     Active Substance: CYTARABINE
     Dosage: 75 MG/M2 DAILY, CYCLIC (CYCLE 2), DAY 2-5, 9-12
  74. CYTARABINE [Suspect]
     Active Substance: CYTARABINE
     Dosage: 75 MG/M2 DAILY, CYCLIC (CYCLE 2), DAY 2-5, 9-12
  75. CYTARABINE [Suspect]
     Active Substance: CYTARABINE
     Dosage: 75 MG/M2 DAILY, CYCLIC (CYCLE 2), DAY 2-5, 9-12
     Route: 058
  76. CYTARABINE [Suspect]
     Active Substance: CYTARABINE
     Dosage: 75 MG/M2 DAILY, CYCLIC (CYCLE 2), DAY 2-5, 9-12
     Route: 058
  77. THIOTEPA [Suspect]
     Active Substance: THIOTEPA
     Indication: Acute lymphocytic leukaemia
     Dosage: 5MG/KG DAY1-2
     Dates: start: 20150904
  78. THIOTEPA [Suspect]
     Active Substance: THIOTEPA
     Dosage: 5MG/KG DAY1-2
     Dates: start: 20150904
  79. THIOTEPA [Suspect]
     Active Substance: THIOTEPA
     Dosage: 5MG/KG DAY1-2
     Route: 065
     Dates: start: 20150904
  80. THIOTEPA [Suspect]
     Active Substance: THIOTEPA
     Dosage: 5MG/KG DAY1-2
     Route: 065
     Dates: start: 20150904
  81. THIOTEPA [Suspect]
     Active Substance: THIOTEPA
     Dates: start: 20150904
  82. THIOTEPA [Suspect]
     Active Substance: THIOTEPA
     Dates: start: 20150904
  83. THIOTEPA [Suspect]
     Active Substance: THIOTEPA
     Route: 042
     Dates: start: 20150904
  84. THIOTEPA [Suspect]
     Active Substance: THIOTEPA
     Route: 042
     Dates: start: 20150904
  85. LEUCOVORIN [Suspect]
     Active Substance: LEUCOVORIN\LEUCOVORIN CALCIUM
     Indication: Acute lymphocytic leukaemia
  86. LEUCOVORIN [Suspect]
     Active Substance: LEUCOVORIN\LEUCOVORIN CALCIUM
     Route: 042
  87. LEUCOVORIN [Suspect]
     Active Substance: LEUCOVORIN\LEUCOVORIN CALCIUM
     Route: 042
  88. LEUCOVORIN [Suspect]
     Active Substance: LEUCOVORIN\LEUCOVORIN CALCIUM
  89. DEXAMETHASONE SODIUM PHOSPHATE [Suspect]
     Active Substance: DEXAMETHASONE SODIUM PHOSPHATE
     Indication: Acute lymphocytic leukaemia
     Dosage: 5 MG/M2 2XDAY, CYCLIC; DAY 1-5 (CYCLE 2)
  90. DEXAMETHASONE SODIUM PHOSPHATE [Suspect]
     Active Substance: DEXAMETHASONE SODIUM PHOSPHATE
     Dosage: 5 MG/M2 2XDAY, CYCLIC; DAY 1-5 (CYCLE 2)
     Route: 042
  91. DEXAMETHASONE SODIUM PHOSPHATE [Suspect]
     Active Substance: DEXAMETHASONE SODIUM PHOSPHATE
     Dosage: 5 MG/M2 2XDAY, CYCLIC; DAY 1-5 (CYCLE 2)
     Route: 042
  92. DEXAMETHASONE SODIUM PHOSPHATE [Suspect]
     Active Substance: DEXAMETHASONE SODIUM PHOSPHATE
     Dosage: 5 MG/M2 2XDAY, CYCLIC; DAY 1-5 (CYCLE 2)
  93. DEXAMETHASONE SODIUM PHOSPHATE [Suspect]
     Active Substance: DEXAMETHASONE SODIUM PHOSPHATE
     Indication: Acute lymphocytic leukaemia
  94. DEXAMETHASONE SODIUM PHOSPHATE [Suspect]
     Active Substance: DEXAMETHASONE SODIUM PHOSPHATE
     Route: 048
  95. DEXAMETHASONE SODIUM PHOSPHATE [Suspect]
     Active Substance: DEXAMETHASONE SODIUM PHOSPHATE
     Route: 048
  96. DEXAMETHASONE SODIUM PHOSPHATE [Suspect]
     Active Substance: DEXAMETHASONE SODIUM PHOSPHATE
  97. CYTARABINE [Suspect]
     Active Substance: CYTARABINE
     Indication: Acute lymphocytic leukaemia
  98. CYTARABINE [Suspect]
     Active Substance: CYTARABINE
     Route: 042
  99. CYTARABINE [Suspect]
     Active Substance: CYTARABINE
     Route: 042
  100. CYTARABINE [Suspect]
     Active Substance: CYTARABINE
  101. INOTUZUMAB OZOGAMICIN [Concomitant]
     Active Substance: INOTUZUMAB OZOGAMICIN
     Indication: Product used for unknown indication
  102. INOTUZUMAB OZOGAMICIN [Concomitant]
     Active Substance: INOTUZUMAB OZOGAMICIN
     Route: 065
  103. INOTUZUMAB OZOGAMICIN [Concomitant]
     Active Substance: INOTUZUMAB OZOGAMICIN
     Route: 065
  104. INOTUZUMAB OZOGAMICIN [Concomitant]
     Active Substance: INOTUZUMAB OZOGAMICIN

REACTIONS (4)
  - Neoplasm recurrence [Unknown]
  - Acute lymphocytic leukaemia recurrent [Unknown]
  - Neurotoxicity [Recovered/Resolved]
  - Seizure [Recovered/Resolved]
